FAERS Safety Report 20516626 (Version 1)
Quarter: 2022Q1

REPORT INFORMATION
  Report Type: Spontaneous
  Country: US (occurrence: US)
  Receive Date: 20220225
  Receipt Date: 20220225
  Transmission Date: 20220423
  Serious: No
  Sender: FDA-Public Use
  Company Number: US-BRISTOL-MYERS SQUIBB COMPANY-BMS-2022-028192

PATIENT
  Age: 62 Year
  Sex: Female

DRUGS (2)
  1. ORENCIA [Suspect]
     Active Substance: ABATACEPT
     Indication: Rheumatoid arthritis
     Dosage: 125MG/ML QWK
     Route: 058
     Dates: start: 20191008
  2. ORENCIA [Suspect]
     Active Substance: ABATACEPT
     Indication: Rheumatoid arthritis
     Dosage: 125MG/ML QWK
     Route: 058
     Dates: start: 20191008

REACTIONS (2)
  - Joint swelling [Unknown]
  - Arthralgia [Unknown]
